FAERS Safety Report 9160868 (Version 1)
Quarter: 2013Q1

REPORT INFORMATION
  Report Type: Report from Study
  Country: IL (occurrence: IL)
  Receive Date: 20130313
  Receipt Date: 20130313
  Transmission Date: 20140127
  Serious: Yes (Death, Other)
  Sender: FDA-Public Use
  Company Number: IL-BAXTER-2013BAX009343

PATIENT
  Sex: 0

DRUGS (4)
  1. ENDOXAN-1G [Suspect]
     Indication: NON-HODGKIN^S LYMPHOMA
     Route: 065
  2. DOXORUBICIN [Suspect]
     Indication: NON-HODGKIN^S LYMPHOMA
     Route: 065
  3. VINCRISTINE [Suspect]
     Indication: NON-HODGKIN^S LYMPHOMA
     Route: 065
  4. PREDNISONE [Suspect]
     Indication: NON-HODGKIN^S LYMPHOMA
     Route: 065

REACTIONS (2)
  - Gastrointestinal perforation [Unknown]
  - Peritonitis [Fatal]
